FAERS Safety Report 6883963-4 (Version None)
Quarter: 2010Q3

REPORT INFORMATION
  Report Type: 
  Country: None (occurrence: None)
  Receive Date: 20100729
  Receipt Date: 20100713
  Transmission Date: 20110219
  Serious: No
  Sender: FDA-Public Use
  Company Number: US-B.I. PHARMACEUTICALS,INC./RIDGEFIELD-2010-BP-08047BP

PATIENT
  Age: 75 Year
  Sex: Female

DRUGS (4)
  1. SPIRIVA [Suspect]
     Indication: CHRONIC OBSTRUCTIVE PULMONARY DISEASE
     Dosage: 18 MCG
     Route: 055
     Dates: start: 20100708, end: 20100710
  2. PRILOSEC [Concomitant]
     Indication: GASTROOESOPHAGEAL REFLUX DISEASE
  3. ASPIRIN [Concomitant]
     Dosage: 325 MG
  4. LEVOXYL [Concomitant]
     Indication: THYROID DISORDER
     Dosage: 75 MG

REACTIONS (2)
  - VISION BLURRED [None]
  - VITREOUS FLOATERS [None]
